FAERS Safety Report 20408595 (Version 1)
Quarter: 2022Q1

REPORT INFORMATION
  Report Type: Spontaneous
  Country: US (occurrence: US)
  Receive Date: 20220201
  Receipt Date: 20220201
  Transmission Date: 20220423
  Serious: Yes (Death)
  Sender: FDA-Public Use
  Company Number: US-HETERO-HET2022US00208

PATIENT

DRUGS (1)
  1. RITONAVIR [Suspect]
     Active Substance: RITONAVIR
     Indication: COVID-19
     Dosage: 1 NIRMATRELVIR 150 MG TABLET 1 RITONAVIR 100 MG TABLET
     Route: 065
     Dates: start: 20220113, end: 20220115

REACTIONS (5)
  - Death [Fatal]
  - Product dispensing error [Unknown]
  - Off label use [Unknown]
  - Off label use [Unknown]
  - Product use issue [Unknown]

NARRATIVE: CASE EVENT DATE: 20220113
